FAERS Safety Report 21340724 (Version 1)
Quarter: 2022Q3

REPORT INFORMATION
  Report Type: Spontaneous
  Country: US (occurrence: US)
  Receive Date: 20220916
  Receipt Date: 20220916
  Transmission Date: 20221027
  Serious: No
  Sender: FDA-Public Use
  Company Number: US-STRIDES ARCOLAB LIMITED-2022SP005100

PATIENT
  Age: 75 Year
  Sex: Female
  Weight: 72.562 kg

DRUGS (3)
  1. BENZONATATE [Suspect]
     Active Substance: BENZONATATE
     Indication: Cough
     Dosage: 200 MILLIGRAM CAPSULE THREE TIMES A DAY
     Route: 048
     Dates: start: 20220503, end: 20220503
  2. BENZONATATE [Suspect]
     Active Substance: BENZONATATE
     Indication: Sinusitis
  3. BENZONATATE [Suspect]
     Active Substance: BENZONATATE
     Indication: Upper-airway cough syndrome

REACTIONS (4)
  - Panic attack [Unknown]
  - Feeling abnormal [Unknown]
  - Hypoaesthesia [Unknown]
  - Off label use [Unknown]

NARRATIVE: CASE EVENT DATE: 20220503
